FAERS Safety Report 21873408 (Version 1)
Quarter: 2023Q1

REPORT INFORMATION
  Report Type: Spontaneous
  Country: US (occurrence: None)
  Receive Date: 20230116
  Receipt Date: 20230116
  Transmission Date: 20230417
  Serious: Yes (unspecified)
  Sender: FDA-Public Use
  Company Number: None

PATIENT
  Age: 70 Year
  Sex: Female

DRUGS (1)
  1. VABYSMO [Suspect]
     Active Substance: FARICIMAB-SVOA
     Indication: Neovascular age-related macular degeneration
     Dosage: OTHER FREQUENCY : 6 WEEKS;?
     Route: 031
     Dates: start: 20221024, end: 20221205

REACTIONS (1)
  - Uveitis [None]

NARRATIVE: CASE EVENT DATE: 20221205
